FAERS Safety Report 8226404-7 (Version None)
Quarter: 2012Q1

REPORT INFORMATION
  Report Type: 
  Country: None (occurrence: None)
  Receive Date: 20120321
  Receipt Date: 20120215
  Transmission Date: 20120608
  Serious: Yes (Other)
  Sender: FDA-Public Use
  Company Number: PHEH2012US004267

PATIENT
  Sex: Female
  Weight: 61 kg

DRUGS (1)
  1. SANDOSTATIN LAR [Suspect]
     Indication: CARCINOID TUMOUR
     Dosage: 30 UKN, UNK
     Route: 030
     Dates: start: 20070816, end: 20120213

REACTIONS (6)
  - DYSARTHRIA [None]
  - ANXIETY [None]
  - BLOOD PRESSURE INCREASED [None]
  - CONFUSIONAL STATE [None]
  - TEARFULNESS [None]
  - HEADACHE [None]
